FAERS Safety Report 12818671 (Version 1)
Quarter: 2016Q4

REPORT INFORMATION
  Report Type: Report from Study
  Country: CO (occurrence: CO)
  Receive Date: 20161006
  Receipt Date: 20161006
  Transmission Date: 20170207
  Serious: Yes (Hospitalization)
  Sender: FDA-Public Use
  Company Number: PHHY2015CO157486

PATIENT
  Sex: Female

DRUGS (2)
  1. EXJADE [Suspect]
     Active Substance: DEFERASIROX
     Indication: IRON OVERLOAD
     Dosage: 500 MG, QD
     Route: 048
     Dates: start: 20150710, end: 20150926
  2. EXJADE [Suspect]
     Active Substance: DEFERASIROX
     Dosage: 500 MG, TID
     Route: 048

REACTIONS (6)
  - Dizziness [Unknown]
  - Gait disturbance [Unknown]
  - Depression [Unknown]
  - Inappropriate schedule of drug administration [Unknown]
  - Cholelithiasis [Unknown]
  - Appendicitis [Unknown]
